FAERS Safety Report 7184015-9 (Version None)
Quarter: 2010Q4

REPORT INFORMATION
  Report Type: 
  Country: None (occurrence: None)
  Receive Date: 20101123
  Receipt Date: 20100924
  Transmission Date: 20110411
  Serious: No
  Sender: FDA-Public Use
  Company Number: 017728

PATIENT
  Sex: Female
  Weight: 82 kg

DRUGS (2)
  1. CIMZIA [Suspect]
     Indication: CROHN'S DISEASE
     Dosage: (DOSE 2 SHOTS ONCE EVERY 4 WEEKS SUBCUTANEOUS)
     Route: 058
     Dates: start: 20100201
  2. PREDNISONE [Concomitant]

REACTIONS (2)
  - FEELING ABNORMAL [None]
  - INSOMNIA [None]
